FAERS Safety Report 4582443-9 (Version None)
Quarter: 2005Q1

REPORT INFORMATION
  Report Type: 
  Country: None (occurrence: None)
  Receive Date: 20050125
  Receipt Date: 20040726
  Transmission Date: 20050727
  Serious: No
  Sender: FDA-Public Use
  Company Number: REM_00063_2004

PATIENT
  Age: 101 Year
  Sex: Female

DRUGS (2)
  1. REMODULIN [Suspect]
     Indication: PULMONARY HYPERTENSION
     Dates: end: 20040401
  2. TRACLEER [Suspect]
     Indication: PULMONARY HYPERTENSION
     Dates: start: 20020221, end: 20020708

REACTIONS (2)
  - ABDOMINAL PAIN [None]
  - INFUSION SITE PAIN [None]
